FAERS Safety Report 5282064-9 (Version None)
Quarter: 2007Q1

REPORT INFORMATION
  Report Type: 
  Country: None (occurrence: None)
  Receive Date: 20070330
  Receipt Date: 20070323
  Transmission Date: 20070707
  Serious: Yes (Other)
  Sender: FDA-Public Use
  Company Number: FR-ABBOTT-07P-056-0362937-00

PATIENT
  Age: 37 Year
  Sex: Male

DRUGS (7)
  1. RITONAVIR [Suspect]
     Indication: SYSTEMIC ANTIVIRAL TREATMENT
     Dates: start: 19960513
  2. CLINDAMYCIN [Concomitant]
     Indication: ROUTINE HEALTH MAINTENANCE
     Dosage: NOT REPORTED
  3. PYRIMETHAMINE TAB [Concomitant]
     Indication: ROUTINE HEALTH MAINTENANCE
     Dosage: NOT REPORTED
  4. FLUCONAZOLE [Concomitant]
     Indication: ROUTINE HEALTH MAINTENANCE
     Dosage: NOT REPORTED
  5. FOSCARNET [Concomitant]
     Indication: ROUTINE HEALTH MAINTENANCE
  6. LAMIVUDINE [Concomitant]
     Indication: SYSTEMIC ANTIVIRAL TREATMENT
     Dates: start: 19960513
  7. STAVUDINE [Concomitant]
     Dates: start: 19960513

REACTIONS (1)
  - RENAL FAILURE [None]
